FAERS Safety Report 6653332-0 (Version None)
Quarter: 2010Q1

REPORT INFORMATION
  Report Type: 
  Country: None (occurrence: None)
  Receive Date: 20100326
  Receipt Date: 20100316
  Transmission Date: 20100710
  Serious: Yes (Hospitalization)
  Sender: FDA-Public Use
  Company Number: JP-JNJFOC-20100305930

PATIENT
  Age: 4 Month
  Sex: Male

DRUGS (4)
  1. INFLIXIMAB [Suspect]
     Indication: KAWASAKI'S DISEASE
     Route: 042
  2. POLYGAM S/D [Concomitant]
     Indication: KAWASAKI'S DISEASE
     Route: 042
  3. ASPIRIN [Concomitant]
     Indication: KAWASAKI'S DISEASE
     Route: 048
  4. METYLPREDNISOLON SOLUBILE [Concomitant]
     Indication: KAWASAKI'S DISEASE

REACTIONS (2)
  - DERMATITIS [None]
  - DERMATITIS PSORIASIFORM [None]
